FAERS Safety Report 9392771 (Version 1)
Quarter: 2013Q3

REPORT INFORMATION
  Report Type: Report from Study
  Country: FR (occurrence: FR)
  Receive Date: 20130710
  Receipt Date: 20130710
  Transmission Date: 20140515
  Serious: Yes (Hospitalization)
  Sender: FDA-Public Use
  Company Number: FR-ROCHE-1245506

PATIENT
  Age: 74 Year
  Sex: Female
  Weight: 73 kg

DRUGS (7)
  1. TOCILIZUMAB [Suspect]
     Indication: RHEUMATOID ARTHRITIS
     Route: 041
     Dates: start: 20120608
  2. TOCILIZUMAB [Suspect]
     Route: 065
     Dates: start: 20120709
  3. TOCILIZUMAB [Suspect]
     Route: 065
     Dates: start: 20120810
  4. TOCILIZUMAB [Suspect]
     Route: 065
     Dates: start: 20121003
  5. TOCILIZUMAB [Suspect]
     Route: 065
     Dates: start: 20130205
  6. RITUXIMAB [Concomitant]
     Route: 065
     Dates: start: 20130205
  7. CORTANCYL [Concomitant]
     Route: 065

REACTIONS (1)
  - Hip arthroplasty [Recovered/Resolved]
